FAERS Safety Report 6462418-5 (Version None)
Quarter: 2009Q4

REPORT INFORMATION
  Report Type: 
  Country: None (occurrence: None)
  Receive Date: 20091130
  Receipt Date: 20091119
  Transmission Date: 20100525
  Serious: Yes (Hospitalization)
  Sender: FDA-Public Use
  Company Number: GB-PFIZER INC-2009299912

PATIENT
  Age: 70 Year
  Sex: Female

DRUGS (15)
  1. PHENYTOIN AND PHENYTOIN SODIUM [Suspect]
     Indication: CONVULSION
     Dosage: 150 MG, 1X/DAY
     Route: 048
     Dates: start: 20080716
  2. ATORVASTATIN [Concomitant]
     Dosage: UNK
  3. CLOMETHIAZOLE [Concomitant]
     Dosage: UNK
  4. CO-DYDRAMOL [Concomitant]
     Dosage: UNK
  5. DIAZEPAM [Concomitant]
     Dosage: UNK
  6. GAVISCON [Concomitant]
     Dosage: UNK
  7. GLYCERYL TRINITRATE [Concomitant]
     Dosage: UNK
  8. HALOPERIDOL [Concomitant]
     Dosage: UNK
  9. HYDROXYZINE HYDROCHLORIDE [Concomitant]
     Dosage: UNK
  10. IBUPROFEN [Concomitant]
     Dosage: UNK
  11. LANSOPRAZOLE [Concomitant]
     Dosage: UNK
  12. LORAZEPAM [Concomitant]
     Dosage: UNK
  13. MIRTAZAPINE [Concomitant]
     Dosage: UNK
  14. RAMIPRIL [Concomitant]
     Dosage: UNK
  15. SENNA [Concomitant]
     Dosage: UNK

REACTIONS (2)
  - ABNORMAL BEHAVIOUR [None]
  - AGGRESSION [None]
